FAERS Safety Report 13941786 (Version 2)
Quarter: 2018Q1

REPORT INFORMATION
  Report Type: Spontaneous
  Country: US (occurrence: US)
  Receive Date: 20170906
  Receipt Date: 20180131
  Transmission Date: 20180508
  Serious: Yes (Hospitalization)
  Sender: FDA-Public Use
  Company Number: US-DSJP-DSU-2017-135169

PATIENT

DRUGS (1)
  1. BENICAR [Suspect]
     Active Substance: OLMESARTAN MEDOXOMIL
     Indication: PRODUCT USED FOR UNKNOWN INDICATION
     Dosage: UNK
     Route: 048
     Dates: start: 20080701, end: 20161105

REACTIONS (4)
  - Gastrointestinal disorder [Unknown]
  - Constipation [Unknown]
  - Abdominal hernia [Unknown]
  - Weight decreased [Unknown]

NARRATIVE: CASE EVENT DATE: 20120314
